FAERS Safety Report 16791985 (Version 1)
Quarter: 2019Q3

REPORT INFORMATION
  Report Type: Spontaneous
  Country: CH (occurrence: CH)
  Receive Date: 20190910
  Receipt Date: 20190910
  Transmission Date: 20191005
  Serious: Yes (Congenital Anomaly, Other)
  Sender: FDA-Public Use
  Company Number: CH-ASTRAZENECA-2019SF25239

PATIENT
  Age: 0 Year
  Sex: Male
  Weight: 2.5 kg

DRUGS (8)
  1. NEXIUM [Suspect]
     Active Substance: ESOMEPRAZOLE MAGNESIUM
     Route: 064
  2. MUTAGRIP S [Suspect]
     Active Substance: INFLUENZA VIRUS VACCINE
     Route: 064
  3. FERINJECT [Suspect]
     Active Substance: FERRIC CARBOXYMALTOSE
     Route: 064
  4. FLUOMIZIN [Suspect]
     Active Substance: DEQUALINIUM CHLORIDE
     Route: 064
  5. GYNO CANESTEN CREMA 1% [Suspect]
     Active Substance: CLOTRIMAZOLE
     Route: 064
  6. DAFALGAN [Suspect]
     Active Substance: ACETAMINOPHEN
     Route: 064
  7. BOOSTRIX [Suspect]
     Active Substance: TETANUS TOXOID, REDUCED DIPHTHERIA TOXOID AND ACELLULAR PERTUSSIS VACCINE, ADSORBED ANTIGENS
     Route: 064
  8. ELEVIT PRONATAL [Concomitant]
     Active Substance: MINERALS\VITAMINS
     Route: 064
     Dates: start: 201901

REACTIONS (3)
  - Renal aplasia [Not Recovered/Not Resolved]
  - Foetal growth restriction [Recovered/Resolved]
  - Exposure during pregnancy [Recovered/Resolved]

NARRATIVE: CASE EVENT DATE: 2019
